FAERS Safety Report 5366324-9 (Version None)
Quarter: 2007Q2

REPORT INFORMATION
  Report Type: 
  Country: None (occurrence: None)
  Receive Date: 20070620
  Receipt Date: 20070620
  Transmission Date: 20071010
  Serious: Yes (Life-Threatening, Hospitalization, Disabling)
  Sender: FDA-Public Use
  Company Number: None

PATIENT
  Age: 43 Year
  Sex: Male
  Weight: 97 kg

DRUGS (3)
  1. SERTRALINE [Suspect]
     Indication: DEPRESSION
     Dosage: 100MG DAILY PO
     Route: 048
     Dates: start: 20070408, end: 20070612
  2. TRAZODONE HCL [Suspect]
     Indication: NERVOUSNESS
     Dosage: 50-150MG BEDTIME PO
     Route: 048
     Dates: start: 20070408, end: 20070612
  3. PREDNISONE TAB [Concomitant]

REACTIONS (2)
  - CONVULSION [None]
  - GRAND MAL CONVULSION [None]
